FAERS Safety Report 14604519 (Version 1)
Quarter: 2018Q1

REPORT INFORMATION
  Report Type: Spontaneous
  Country: DE (occurrence: DE)
  Receive Date: 20180306
  Receipt Date: 20180306
  Transmission Date: 20180509
  Serious: Yes (Other)
  Sender: FDA-Public Use
  Company Number: DE-TEVA-2018-DE-863375

PATIENT
  Sex: Male
  Weight: 102 kg

DRUGS (4)
  1. GRANISETRON HYDROCHLORIDE. [Concomitant]
     Active Substance: GRANISETRON HYDROCHLORIDE
     Indication: PREMEDICATION
     Dosage: DURING THERAPY
  2. IRINOMEDAC [Concomitant]
     Indication: MIXED ADENONEUROENDOCRINE CARCINOMA
     Dosage: 180 MG/M2; LAST ADMINISTRATION BEFORE AE ONSET: 09-JAN-2017
     Dates: start: 20170109, end: 20170124
  3. FLUOROURACIL. [Suspect]
     Active Substance: FLUOROURACIL
     Indication: MIXED ADENONEUROENDOCRINE CARCINOMA
     Dosage: 1600 MG/M2; LAST ADMINISTRATION BEFORE AE ONSET: 10-JAN-2017
     Dates: start: 20170109
  4. ONCOFOLIC [Concomitant]
     Active Substance: FOLATE SODIUM
     Indication: MIXED ADENONEUROENDOCRINE CARCINOMA
     Dosage: 400 MG/M2; LAST ADMINISTRATION BEFORE AE ONSET: 09-JAN-2017
     Dates: start: 20170109

REACTIONS (1)
  - Peripheral sensory neuropathy [Not Recovered/Not Resolved]
